FAERS Safety Report 4633095-0 (Version None)
Quarter: 2005Q2

REPORT INFORMATION
  Report Type: 
  Country: None (occurrence: None)
  Receive Date: 20050411
  Receipt Date: 20050411
  Transmission Date: 20051028
  Serious: Yes (Other)
  Sender: FDA-Public Use
  Company Number: None

PATIENT
  Age: 42 Year
  Sex: Female
  Weight: 54.4316 kg

DRUGS (6)
  1. FACTIVE [Suspect]
     Dosage: 320 MG DAILY ORAL
     Route: 048
     Dates: start: 20050201, end: 20050202
  2. SYNTHROID [Concomitant]
  3. GLUCOPHAGE [Concomitant]
  4. ADVAIR DISKUS 100/50 [Concomitant]
  5. ALBUTEROL [Concomitant]
  6. SPIRIVA [Concomitant]

REACTIONS (2)
  - DYSPHAGIA [None]
  - RASH PRURITIC [None]
